FAERS Safety Report 5044330-1 (Version None)
Quarter: 2006Q2

REPORT INFORMATION
  Report Type: 
  Country: None (occurrence: None)
  Receive Date: 20060629
  Receipt Date: 20060620
  Transmission Date: 20061013
  Serious: Yes (Other)
  Sender: FDA-Public Use
  Company Number: 2006079336

PATIENT
  Age: 43 Year
  Sex: Male

DRUGS (1)
  1. HALCION [Suspect]
     Dosage: AS NECESSARY, ORAL
     Route: 048

REACTIONS (1)
  - DYSGEUSIA [None]
